FAERS Safety Report 13891926 (Version 1)
Quarter: 2017Q3

REPORT INFORMATION
  Report Type: Spontaneous
  Country: GB (occurrence: GB)
  Receive Date: 20170822
  Receipt Date: 20170822
  Transmission Date: 20171127
  Serious: Yes (Other)
  Sender: FDA-Public Use
  Company Number: GB-TEVA-796914ACC

PATIENT
  Age: 56 Year
  Sex: Female
  Weight: 91 kg

DRUGS (6)
  1. FENTANYL. [Concomitant]
     Active Substance: FENTANYL
     Route: 062
  2. LANSOPRAZOLE. [Suspect]
     Active Substance: LANSOPRAZOLE
     Indication: GASTROOESOPHAGEAL REFLUX DISEASE
     Route: 048
     Dates: start: 20170603, end: 20170706
  3. CANAGLIFLOZIN [Concomitant]
     Active Substance: CANAGLIFLOZIN
  4. ORAMORPH [Concomitant]
     Active Substance: MORPHINE SULFATE
  5. CANDESARTAN. [Concomitant]
     Active Substance: CANDESARTAN
  6. AMLODIPINE [Concomitant]
     Active Substance: AMLODIPINE BESYLATE

REACTIONS (2)
  - Muscle spasms [Recovered/Resolved]
  - Abdominal discomfort [Recovered/Resolved]

NARRATIVE: CASE EVENT DATE: 20170604
